FAERS Safety Report 25389694 (Version 1)
Quarter: 2025Q2

REPORT INFORMATION
  Report Type: Spontaneous
  Country: US (occurrence: US)
  Receive Date: 20250603
  Receipt Date: 20250603
  Transmission Date: 20250716
  Serious: No
  Sender: CHATTEM
  Company Number: US-OPELLA-2025OHG016981

PATIENT
  Sex: Female

DRUGS (1)
  1. ALLEGRA-D 24 HOUR [Suspect]
     Active Substance: FEXOFENADINE HYDROCHLORIDE\PSEUDOEPHEDRINE HYDROCHLORIDE
     Indication: Product used for unknown indication
     Dosage: STRENGTH/UNITS: 180 MG+240 MG
     Route: 065

REACTIONS (3)
  - Malaise [Unknown]
  - Unevaluable event [Unknown]
  - Expired product administered [Unknown]

NARRATIVE: CASE EVENT DATE: 20250501
